FAERS Safety Report 17556538 (Version 1)
Quarter: 2020Q1

REPORT INFORMATION
  Report Type: Spontaneous
  Country: US (occurrence: US)
  Receive Date: 20200311
  Receipt Date: 20200311
  Transmission Date: 20200409
  Serious: Yes (Death)
  Sender: FDA-Public Use
  Company Number: None

PATIENT
  Age: 48 Year
  Sex: Female

DRUGS (1)
  1. TEMOZOLOMIDE 100MG CAPSULE [Suspect]
     Active Substance: TEMOZOLOMIDE
     Indication: BRAIN NEOPLASM MALIGNANT
     Dosage: RECENT. DAILY MON TO FRI
     Route: 048
     Dates: start: 20191008

REACTIONS (1)
  - Death [None]

NARRATIVE: CASE EVENT DATE: 20200311
